FAERS Safety Report 4774294-7 (Version None)
Quarter: 2005Q3

REPORT INFORMATION
  Report Type: 
  Country: None (occurrence: None)
  Receive Date: 20050921
  Receipt Date: 20050718
  Transmission Date: 20060218
  Serious: Yes (Hospitalization)
  Sender: FDA-Public Use
  Company Number: PHBS2005CR10237

PATIENT
  Age: 49 Year
  Sex: Female

DRUGS (2)
  1. GLEEVEC [Suspect]
     Dosage: 400 MG, QD
     Route: 048
     Dates: start: 20040102, end: 20050714
  2. GLEEVEC [Suspect]
     Route: 048

REACTIONS (8)
  - AMAUROSIS [None]
  - BLINDNESS [None]
  - DYSARTHRIA [None]
  - EXTENSOR PLANTAR RESPONSE [None]
  - HEADACHE [None]
  - HEMIPLEGIA [None]
  - OPTIC ATROPHY [None]
  - PROGRESSIVE MULTIFOCAL LEUKOENCEPHALOPATHY [None]
